FAERS Safety Report 6197655-0 (Version None)
Quarter: 2009Q2

REPORT INFORMATION
  Report Type: 
  Country: None (occurrence: None)
  Receive Date: 20090521
  Receipt Date: 20090518
  Transmission Date: 20091009
  Serious: Yes (Hospitalization)
  Sender: FDA-Public Use
  Company Number: FR-BRISTOL-MYERS SQUIBB COMPANY-14628986

PATIENT
  Age: 60 Year
  Sex: Female

DRUGS (3)
  1. CETUXIMAB [Suspect]
     Indication: COLORECTAL CANCER METASTATIC
     Dosage: INITIATED ON 26MAR09-(400MG/M2)CYCLIC
     Route: 042
     Dates: start: 20090507, end: 20090507
  2. PAZOPANIB [Suspect]
     Indication: COLORECTAL CANCER METASTATIC
     Dosage: 1ST CYCLE:27MAR09-29APR09(46 DAYS).4TH CYCLE ON 07MAY09;INTERUPTED ON 11MAY09.
     Route: 048
     Dates: start: 20090327
  3. IRINOTECAN HCL [Suspect]
     Indication: COLORECTAL CANCER METASTATIC
     Dosage: INITAL DOSE:26MAR09-UNK(150MG/M2)
     Route: 042
     Dates: start: 20090507, end: 20090507

REACTIONS (1)
  - HAEMORRHAGE [None]
